FAERS Safety Report 25628206 (Version 4)
Quarter: 2025Q4

REPORT INFORMATION
  Report Type: Report from Study
  Country: US (occurrence: US)
  Receive Date: 20250731
  Receipt Date: 20251103
  Transmission Date: 20260118
  Serious: Yes (Other)
  Sender: MERCK SHARP & DOHME LLC
  Company Number: US-009507513-2269594

PATIENT
  Sex: Female
  Weight: 83.461 kg

DRUGS (17)
  1. WINREVAIR [Suspect]
     Active Substance: SOTATERCEPT-CSRK
     Indication: Pulmonary arterial hypertension
     Dosage: 1.2 ML, EVERY 3 WEEKS
     Route: 058
     Dates: start: 202503
  2. WINREVAIR [Suspect]
     Active Substance: SOTATERCEPT-CSRK
     Dosage: 1.2 ML, EVERY 3 WEEKS
     Route: 058
     Dates: start: 202503
  3. WINREVAIR [Suspect]
     Active Substance: SOTATERCEPT-CSRK
     Dosage: 1.2 ML, EVERY 3 WEEKS
     Route: 058
     Dates: start: 202503
  4. WINREVAIR [Suspect]
     Active Substance: SOTATERCEPT-CSRK
  5. WINREVAIR [Suspect]
     Active Substance: SOTATERCEPT-CSRK
     Indication: Pulmonary arterial hypertension
     Dosage: 0.5ML/EVERY 3 WEEKS
     Route: 058
     Dates: start: 202503
  6. WINREVAIR [Suspect]
     Active Substance: SOTATERCEPT-CSRK
  7. WINREVAIR [Suspect]
     Active Substance: SOTATERCEPT-CSRK
  8. WINREVAIR [Suspect]
     Active Substance: SOTATERCEPT-CSRK
  9. WINREVAIR [Suspect]
     Active Substance: SOTATERCEPT-CSRK
  10. WINREVAIR [Suspect]
     Active Substance: SOTATERCEPT-CSRK
  11. WINREVAIR [Suspect]
     Active Substance: SOTATERCEPT-CSRK
  12. WINREVAIR [Suspect]
     Active Substance: SOTATERCEPT-CSRK
  13. TADALAFIL [Concomitant]
     Active Substance: TADALAFIL
  14. OPSUMIT [Concomitant]
     Active Substance: MACITENTAN
  15. ADEMPAS [Concomitant]
     Active Substance: RIOCIGUAT
  16. UPTRAVI [Suspect]
     Active Substance: SELEXIPAG
  17. UPTRAVI [Suspect]
     Active Substance: SELEXIPAG
     Dosage: PLANED TO INCREASE EVENING DOSE TO 1000MCG TONIGHT THEN CONTINUE TAKING 800MCG IN THE MORNING, 10...
     Dates: start: 20251027

REACTIONS (15)
  - Haematochezia [Recovered/Resolved]
  - Neck pain [Not Recovered/Not Resolved]
  - Tachycardia [Recovered/Resolved]
  - Dyspnoea exertional [Not Recovered/Not Resolved]
  - Hot flush [Not Recovered/Not Resolved]
  - Flushing [Not Recovered/Not Resolved]
  - Injection site erythema [Unknown]
  - Feeling hot [Unknown]
  - Headache [Recovering/Resolving]
  - Productive cough [Unknown]
  - Respiratory disorder [Unknown]
  - Laryngitis [Unknown]
  - Generalised oedema [Unknown]
  - Weight decreased [Unknown]
  - Diarrhoea [Not Recovered/Not Resolved]

NARRATIVE: CASE EVENT DATE: 20250101
